FAERS Safety Report 7764386-2 (Version None)
Quarter: 2011Q3

REPORT INFORMATION
  Report Type: 
  Country: None (occurrence: None)
  Receive Date: 20110919
  Receipt Date: 20110905
  Transmission Date: 20111222
  Serious: Yes (Other)
  Sender: FDA-Public Use
  Company Number: GB-1187898

PATIENT
  Age: 86 Year
  Sex: Male

DRUGS (4)
  1. DUTASTERIDE [Concomitant]
  2. FLUORESCITE [Suspect]
     Indication: ANGIOPATHY
     Dosage: INTRAVENOUS BOLUS
     Route: 040
     Dates: start: 20110822, end: 20110822
  3. LANSOPRAZOLE [Concomitant]
  4. AMLODIPINE [Concomitant]

REACTIONS (1)
  - URTICARIA [None]
